FAERS Safety Report 18385677 (Version 1)
Quarter: 2020Q4

REPORT INFORMATION
  Report Type: Spontaneous
  Country: FR (occurrence: FR)
  Receive Date: 20201015
  Receipt Date: 20201015
  Transmission Date: 20210114
  Serious: Yes (Other)
  Sender: FDA-Public Use
  Company Number: FR-ACCORD-205151

PATIENT
  Age: 70 Year
  Sex: Female
  Weight: 60 kg

DRUGS (3)
  1. DOCETAXEL ACCORD [Suspect]
     Active Substance: DOCETAXEL
     Indication: BREAST CANCER
     Route: 041
     Dates: start: 20200818, end: 20200818
  2. ADVIL [Suspect]
     Active Substance: IBUPROFEN
     Indication: PROPHYLAXIS
     Route: 048
     Dates: start: 20200819, end: 20200820
  3. PELMEG [Suspect]
     Active Substance: PEGFILGRASTIM
     Indication: NEUTROPENIA
     Dosage: STRENGTH:6MG, INJECTABLE SOLUTION IN PRE-FILLED SYRINGE
     Route: 058
     Dates: start: 20200820, end: 20200820

REACTIONS (1)
  - Hypersensitivity vasculitis [Recovering/Resolving]

NARRATIVE: CASE EVENT DATE: 20200824
